FAERS Safety Report 6234419-3 (Version None)
Quarter: 2009Q2

REPORT INFORMATION
  Report Type: 
  Country: None (occurrence: None)
  Receive Date: 20090618
  Receipt Date: 20090607
  Transmission Date: 20091009
  Serious: Yes (Hospitalization)
  Sender: FDA-Public Use
  Company Number: TR-ROCHE-636688

PATIENT
  Age: 15 Month
  Sex: Male
  Weight: 10 kg

DRUGS (6)
  1. OSELTAMIVIR [Suspect]
     Indication: AVIAN INFLUENZA
     Dosage: COMPLETED COURSE OF THERAPY
     Route: 065
     Dates: start: 20060205, end: 20060213
  2. VANCOMYCIN HCL [Concomitant]
     Dosage: COMPLETED COURSE OF THERAPY
     Dates: start: 20060205, end: 20060219
  3. IMMUNE GLOBULIN INTRAVENOUS (HUMAN) [Concomitant]
     Dosage: COMPLETED COURSE OF THERAPY
     Dates: start: 20060206, end: 20060208
  4. PARACETAMOL [Concomitant]
     Dosage: AS NEEDED, COMPLETED COURSE OF THERAPY
     Dates: start: 20060205, end: 20060220
  5. METHYLPREDNISOLONE [Concomitant]
     Dosage: COMPLETED COURSE OF THERAPY
     Dates: start: 20060205, end: 20060207
  6. DOPAMINE HYDROCHLORIDE [Concomitant]
     Dosage: AS NEEDED, COMPLETED COURSE OF THERAPY
     Dates: start: 20060205, end: 20060207

REACTIONS (4)
  - CARDIAC FAILURE [None]
  - CONVULSION [None]
  - RESPIRATORY FAILURE [None]
  - SEPSIS [None]
